FAERS Safety Report 6383802-4 (Version None)
Quarter: 2009Q3

REPORT INFORMATION
  Report Type: 
  Country: None (occurrence: None)
  Receive Date: 20090929
  Receipt Date: 20090929
  Transmission Date: 20100115
  Serious: Yes (Other)
  Sender: FDA-Public Use
  Company Number: None

PATIENT
  Sex: Male

DRUGS (2)
  1. DAPTOMYCIN [Suspect]
     Indication: ENTEROCOCCAL INFECTION
     Dosage: 500 MG DAILY IV BOLUS
     Route: 040
  2. DAPTOMYCIN [Suspect]
     Indication: SPINAL CORD INFECTION
     Dosage: 500 MG DAILY IV BOLUS
     Route: 040

REACTIONS (3)
  - EOSINOPHILIA [None]
  - LUNG INFILTRATION [None]
  - PNEUMONITIS [None]
